FAERS Safety Report 21775014 (Version 1)
Quarter: 2022Q4

REPORT INFORMATION
  Report Type: Spontaneous
  Country: US (occurrence: US)
  Receive Date: 20221225
  Receipt Date: 20221225
  Transmission Date: 20230112
  Serious: Yes (Other)
  Sender: FDA-Public Use
  Company Number: US-PERRIGO-22US016324

PATIENT
  Age: 49 Year
  Sex: Male

DRUGS (2)
  1. OMEPRAZOLE [Suspect]
     Active Substance: OMEPRAZOLE
     Indication: Gastrooesophageal reflux disease
     Dosage: UNKNOWN, UNKNOWN
     Route: 048
     Dates: start: 200908, end: 20221114
  2. NITROFURANTOIN [Concomitant]
     Active Substance: NITROFURANTOIN
     Indication: Haematuria
     Dosage: 100MG

REACTIONS (6)
  - Chronic kidney disease [Not Recovered/Not Resolved]
  - Haematuria [Not Recovered/Not Resolved]
  - Renal pain [Not Recovered/Not Resolved]
  - Dizziness [Unknown]
  - Myalgia [Unknown]
  - Disability [Unknown]

NARRATIVE: CASE EVENT DATE: 20150227
